FAERS Safety Report 5322468-9 (Version None)
Quarter: 2007Q1

REPORT INFORMATION
  Report Type: 
  Country: None (occurrence: None)
  Receive Date: 20070220
  Receipt Date: 20061110
  Transmission Date: 20070707
  Serious: No
  Sender: FDA-Public Use
  Company Number: TPA2006A02023

PATIENT
  Age: 46 Year
  Sex: Male
  Weight: 72.5755 kg

DRUGS (7)
  1. ROZEREM [Suspect]
     Dosage: PER ORAL
     Route: 048
  2. MUCINEX [Concomitant]
  3. SINGULAIR [Concomitant]
  4. LEXAPRO [Concomitant]
  5. AZAMACORT (TRIAMCINOLONE ACETONIDE) [Concomitant]
  6. ALBUTEROL [Concomitant]
  7. PREDNISONE TAB [Concomitant]

REACTIONS (1)
  - DRUG INEFFECTIVE [None]
